FAERS Safety Report 19736432 (Version 1)
Quarter: 2021Q3

REPORT INFORMATION
  Report Type: Spontaneous
  Country: US (occurrence: US)
  Receive Date: 20210820
  Receipt Date: 20210820
  Transmission Date: 20211014
  Serious: No
  Sender: FDA-Public Use
  Company Number: None

PATIENT
  Sex: Female

DRUGS (1)
  1. STELARA [Suspect]
     Active Substance: USTEKINUMAB
     Indication: PSORIASIS
     Dosage: FREQUENCY: 38MG ON DAY 0, THEN 38MG 4WEEKS LATER, THEN 33MG EVERY 12 WEEKS THEREAFTER?
     Route: 058
     Dates: start: 202103

REACTIONS (1)
  - Drug ineffective [None]
